FAERS Safety Report 15880301 (Version 1)
Quarter: 2019Q1

REPORT INFORMATION
  Report Type: Spontaneous
  Country: US (occurrence: US)
  Receive Date: 20190104
  Receipt Date: 20190104
  Transmission Date: 20190417
  Serious: No
  Sender: FDA-Public Use
  Company Number: None

PATIENT
  Age: 29 Year
  Sex: Male

DRUGS (2)
  1. DESCOVY [Suspect]
     Active Substance: EMTRICITABINE\TENOFOVIR ALAFENAMIDE FUMARATE
     Indication: HIV INFECTION
     Dosage: ?          OTHER DOSE:200/25MG;?
     Route: 048
     Dates: start: 20181005
  2. EFAVIRENZ. [Concomitant]
     Active Substance: EFAVIRENZ

REACTIONS (1)
  - Bipolar I disorder [None]

NARRATIVE: CASE EVENT DATE: 20181225
